FAERS Safety Report 5524674-7 (Version None)
Quarter: 2007Q4

REPORT INFORMATION
  Report Type: 
  Country: None (occurrence: None)
  Receive Date: 20071123
  Receipt Date: 20071113
  Transmission Date: 20080405
  Serious: Yes (Other)
  Sender: FDA-Public Use
  Company Number: US-ROCHE-531754

PATIENT
  Age: 64 Year
  Weight: 81.6 kg

DRUGS (2)
  1. CAPECITABINE [Suspect]
     Indication: BREAST CANCER
     Route: 065
     Dates: start: 20071015
  2. CAPECITABINE [Suspect]
     Dosage: REPORTED AS DECREASED TO ^2^.
     Route: 065
     Dates: end: 20071112

REACTIONS (2)
  - INFLAMMATION [None]
  - PARAESTHESIA [None]
